FAERS Safety Report 22180981 (Version 1)
Quarter: 2023Q2

REPORT INFORMATION
  Report Type: Report from Study
  Country: IE (occurrence: IE)
  Receive Date: 20230406
  Receipt Date: 20230406
  Transmission Date: 20230722
  Serious: Yes (Hospitalization, Other)
  Sender: FDA-Public Use
  Company Number: IE-AstraZeneca-2023A006071

PATIENT
  Sex: Female

DRUGS (4)
  1. SYNAGIS [Suspect]
     Active Substance: PALIVIZUMAB
     Indication: Osteogenesis imperfecta
     Dosage: AFTER 28 DAYS?ONCE IN 4 WEEK
     Route: 030
     Dates: start: 20221103
  2. SYNAGIS [Suspect]
     Active Substance: PALIVIZUMAB
     Dosage: ONCE IN MONTH
     Route: 030
     Dates: start: 20221207
  3. SYNAGIS [Suspect]
     Active Substance: PALIVIZUMAB
     Dosage: ONCE A MONTH
     Route: 030
     Dates: start: 20230126
  4. SYNAGIS [Suspect]
     Active Substance: PALIVIZUMAB
     Dosage: ONCE IN 4 WEEK
     Route: 030
     Dates: end: 20230328

REACTIONS (6)
  - Femur fracture [Recovered/Resolved]
  - Hip fracture [Recovered/Resolved]
  - Food intolerance [Recovered/Resolved]
  - Viral infection [Recovered/Resolved]
  - Malaise [Recovered/Resolved]
  - Inappropriate schedule of product administration [Recovered/Resolved]
